FAERS Safety Report 8380244-7 (Version None)
Quarter: 2012Q2

REPORT INFORMATION
  Report Type: 
  Country: None (occurrence: None)
  Receive Date: 20120523
  Receipt Date: 20120516
  Transmission Date: 20120825
  Serious: Yes (Hospitalization)
  Sender: FDA-Public Use
  Company Number: PHHY2012MX042706

PATIENT
  Sex: Male

DRUGS (3)
  1. DIOVAN [Suspect]
     Indication: HYPERTENSION
     Dosage: 2 TABLETS (80 MG) PER DAY
     Dates: start: 20070101, end: 20120428
  2. GLYBURIDE [Concomitant]
     Indication: DIABETES MELLITUS
     Dates: end: 20120426
  3. METFORMIN HCL [Concomitant]
     Indication: DIABETES MELLITUS
     Dates: start: 20120426

REACTIONS (4)
  - OEDEMA PERIPHERAL [None]
  - BLOOD GLUCOSE INCREASED [None]
  - BLOOD PRESSURE INCREASED [None]
  - LOCALISED INFECTION [None]
